FAERS Safety Report 6754697-1 (Version None)
Quarter: 2010Q2

REPORT INFORMATION
  Report Type: 
  Country: None (occurrence: None)
  Receive Date: 20100603
  Receipt Date: 20100525
  Transmission Date: 20101027
  Serious: Yes (Other)
  Sender: FDA-Public Use
  Company Number: BR-PFIZER INC-2010065450

PATIENT
  Age: 61 Year
  Sex: Male
  Weight: 73 kg

DRUGS (6)
  1. XALATAN [Suspect]
     Indication: GLAUCOMA
     Dosage: 1 GTT, UNK
     Route: 047
     Dates: start: 19970101
  2. ALPHAGAN [Suspect]
  3. BETOPTIC [Suspect]
  4. COSOPT [Suspect]
  5. NYOLOL [Concomitant]
     Dosage: UNK
     Dates: start: 20090501
  6. REMOTIV [Concomitant]
     Dosage: UNK

REACTIONS (7)
  - DRUG HYPERSENSITIVITY [None]
  - FOOD ALLERGY [None]
  - HYPERSENSITIVITY [None]
  - HYPOGLYCAEMIA [None]
  - SKIN HYPERTROPHY [None]
  - WEIGHT DECREASED [None]
  - WEIGHT INCREASED [None]
